FAERS Safety Report 11491977 (Version 1)
Quarter: 2015Q3

REPORT INFORMATION
  Report Type: Spontaneous
  Country: MX (occurrence: MX)
  Receive Date: 20150910
  Receipt Date: 20150910
  Transmission Date: 20151125
  Serious: Yes (Death)
  Sender: FDA-Public Use
  Company Number: MX-ABBVIE-15P-107-1460415-00

PATIENT
  Sex: Male

DRUGS (1)
  1. SIMDAX [Suspect]
     Active Substance: LEVOSIMENDAN
     Indication: POSTPERICARDIOTOMY SYNDROME
     Route: 042

REACTIONS (1)
  - Death [Fatal]
